FAERS Safety Report 20579516 (Version 2)
Quarter: 2022Q2

REPORT INFORMATION
  Report Type: Report from Study
  Country: US (occurrence: US)
  Receive Date: 20220310
  Receipt Date: 20220420
  Transmission Date: 20220721
  Serious: Yes (Hospitalization)
  Sender: FDA-Public Use
  Company Number: US-PFIZER INC-202101024034

PATIENT
  Age: 20 Year
  Sex: Female
  Weight: 70.8 kg

DRUGS (7)
  1. XELJANZ [Suspect]
     Active Substance: TOFACITINIB CITRATE
     Indication: Juvenile idiopathic arthritis
     Dosage: 5 MG, 2X/DAY
     Route: 048
     Dates: start: 20171201, end: 20210721
  2. CYMBALTA [Concomitant]
     Active Substance: DULOXETINE HYDROCHLORIDE
     Indication: Neuralgia
     Dosage: 40 MG, 1X/DAY
     Route: 048
     Dates: start: 20210803
  3. ZITHROMAX [Concomitant]
     Active Substance: AZITHROMYCIN DIHYDRATE
     Indication: Ear infection
     Dosage: 500 MG, 1X/DAY
     Route: 048
     Dates: start: 20210721, end: 20210728
  4. IBUPROFEN [Concomitant]
     Active Substance: IBUPROFEN
     Indication: Ear infection
     Dosage: OTC, AS NEEDED
     Route: 048
     Dates: start: 20210801
  5. TYLENOL [Concomitant]
     Active Substance: ACETAMINOPHEN
     Indication: Ear infection
     Dosage: OTC, AS NEEDED
     Route: 048
     Dates: start: 20210801
  6. AMOXICILLIN [Concomitant]
     Active Substance: AMOXICILLIN
     Indication: Ear infection
     Dosage: UNK
     Route: 048
     Dates: start: 20210802, end: 20210808
  7. VITAMIN D NOS [Concomitant]
     Active Substance: VITAMIN D NOS
     Indication: Vitamin D deficiency
     Dosage: 5000 IU, 1X/DAY
     Route: 048
     Dates: start: 20151026

REACTIONS (1)
  - Infectious mononucleosis [Recovered/Resolved]

NARRATIVE: CASE EVENT DATE: 20210807
